FAERS Safety Report 7796687-6 (Version None)
Quarter: 2011Q3

REPORT INFORMATION
  Report Type: 
  Country: None (occurrence: None)
  Receive Date: 20110930
  Receipt Date: 20110920
  Transmission Date: 20111222
  Serious: Yes (Hospitalization, Other)
  Sender: FDA-Public Use
  Company Number: CIP11000560

PATIENT
  Sex: Female

DRUGS (25)
  1. LORTAB /0060701/ (HYDROCODONE BITARTRATE, PARACETAMOL) [Concomitant]
  2. ASPIRIN [Concomitant]
  3. CALCIUM OYSTER SHELL /00108001/ (CALCIUM CARBONATE) [Concomitant]
  4. GLUCOSAMINE + CHONDROITIN (CHONDROITIN SULFATE, GLUCOSAMINE) [Concomitant]
  5. HYDROXYCHLOROQUINE SULFATE [Concomitant]
  6. CLONAZEPAM [Concomitant]
  7. CYMBALTA [Concomitant]
  8. BUPROPION (PBUPROPION) [Concomitant]
  9. TRAMADOL HCL [Concomitant]
  10. EXCEDRIN /00391201/ (ACETYLSALICYLIC ACID, CAFFEINE, PARACETAMOL) [Concomitant]
  11. PRILOSEC [Concomitant]
  12. ATENOLOL [Concomitant]
  13. TOPAMAX [Concomitant]
  14. BITAMIN B12 /00056201/ (CYANOCOBALAMIN) [Concomitant]
  15. LIDOCAINE [Concomitant]
  16. CYCLOBENZAPRINE [Concomitant]
  17. FOSAMAX PLUS D [Suspect]
     Indication: OSTEOPENIA
     Dosage: 70 MG ONCE WEEKLY, ORAL
     Route: 048
     Dates: end: 20090428
  18. PREVACID [Concomitant]
  19. ABILIFY [Concomitant]
  20. OSCAL 500+D (CALCIUM CARBONATE, ERGOCALCIFEROL) [Concomitant]
  21. ACTONEL [Suspect]
     Indication: OSTEOPOROSIS POSTMENOPAUSAL
     Dosage: 150 MG ONCE MONTHLY, ORAL
     Route: 048
     Dates: start: 20090505, end: 20110101
  22. PERCOCET /00867901/ (OXYCODONE HYDROHCLORIDE, PARACETAMOL) [Concomitant]
  23. TOLMETIN (TOLMETIN) [Concomitant]
  24. ERGOCALCIFEROL [Concomitant]
  25. MULTIVITAMIN /00097801/ (ASCORBIC ACID, CALCIUM PANTOTHENATE, ERGOCALC [Concomitant]

REACTIONS (6)
  - STRESS FRACTURE [None]
  - TREATMENT FAILURE [None]
  - ARTHRALGIA [None]
  - GAIT DISTURBANCE [None]
  - FEMUR FRACTURE [None]
  - FALL [None]
